FAERS Safety Report 8150734 (Version 2)
Quarter: 2013Q1

REPORT INFORMATION
  Report Type: Spontaneous
  Country: US (occurrence: US)
  Receive Date: 20110922
  Receipt Date: 20130218
  Transmission Date: 20140127
  Serious: Yes (Other)
  Sender: FDA-Public Use
  Company Number: US-ASTRAZENECA-2011SE12698

PATIENT
  Age: 48 Year
  Sex: Male

DRUGS (8)
  1. SEROQUEL [Suspect]
     Indication: BIPOLAR DISORDER
     Route: 048
     Dates: start: 20110317
  2. SEROQUEL [Suspect]
     Indication: BIPOLAR DISORDER
     Route: 048
     Dates: end: 201301
  3. LEVOTHYROXINE [Concomitant]
     Dates: start: 20110315
  4. DEPAKOTE [Concomitant]
     Indication: PARTIAL SEIZURES
     Dosage: 250 MG EVERY MORNING AND 500 MG 2 TABLETS AT BEDTIME
     Route: 048
     Dates: end: 201301
  5. DEPAKOTE [Concomitant]
     Indication: BIPOLAR DISORDER
     Dosage: 250 MG EVERY MORNING AND 500 MG 2 TABLETS AT BEDTIME
     Route: 048
     Dates: end: 201301
  6. COGENTIN [Concomitant]
     Indication: EXTRAPYRAMIDAL DISORDER
     Route: 048
     Dates: end: 201301
  7. VASOTEC [Concomitant]
     Route: 048
     Dates: start: 201301
  8. TRICOR [Concomitant]
     Route: 048
     Dates: start: 201301

REACTIONS (3)
  - Pancreatitis [Unknown]
  - Diabetic coma [Unknown]
  - Type 2 diabetes mellitus [Unknown]
